FAERS Safety Report 8618759-6 (Version None)
Quarter: 2012Q3

REPORT INFORMATION
  Report Type: 
  Country: None (occurrence: None)
  Receive Date: 20120824
  Receipt Date: 20120820
  Transmission Date: 20120928
  Serious: Yes (Hospitalization, Disabling)
  Sender: FDA-Public Use
  Company Number: US-AMGEN-USASP2012053169

PATIENT
  Age: 58 Year
  Sex: Female

DRUGS (1)
  1. ENBREL [Suspect]
     Indication: PSORIATIC ARTHROPATHY
     Dosage: 50 MG, QWK
     Dates: start: 20030101, end: 20100101

REACTIONS (5)
  - PSORIATIC ARTHROPATHY [None]
  - BACK PAIN [None]
  - GAIT DISTURBANCE [None]
  - INSOMNIA [None]
  - PARALYSIS [None]
